FAERS Safety Report 10395841 (Version 1)
Quarter: 2014Q3

REPORT INFORMATION
  Report Type: Spontaneous
  Country: CN (occurrence: None)
  Receive Date: 20140818
  Receipt Date: 20140818
  Transmission Date: 20150326
  Serious: Yes (Other)
  Sender: FDA-Public Use
  Company Number: SYM-2014-24213

PATIENT
  Age: 33 Year
  Sex: Male

DRUGS (1)
  1. VERTEPORFIN (INJECTION) (VERTEPORFIN) [Suspect]
     Active Substance: VERTEPORFIN
     Indication: CHOROIDAL HAEMANGIOMA
     Route: 042

REACTIONS (5)
  - Scar [None]
  - Refusal of treatment by patient [None]
  - Retinal artery occlusion [None]
  - Retinal degeneration [None]
  - Post procedural complication [None]
